FAERS Safety Report 13560607 (Version 13)
Quarter: 2021Q1

REPORT INFORMATION
  Report Type: Spontaneous
  Country: US (occurrence: US)
  Receive Date: 20170516
  Receipt Date: 20210318
  Transmission Date: 20210419
  Serious: No
  Sender: FDA-Public Use
  Company Number: US-PFIZER INC-2017213045

PATIENT
  Age: 57 Year
  Sex: Male
  Weight: 93 kg

DRUGS (7)
  1. LYRICA [Suspect]
     Active Substance: PREGABALIN
     Indication: ARACHNOIDITIS
     Dosage: 200 MG, UNK
     Route: 048
  2. LYRICA [Suspect]
     Active Substance: PREGABALIN
     Dosage: 225 MG, THRICE DAILY (STRENGTH: 225 MG; SIG: 1 CAPSULE TID)
  3. LYRICA [Suspect]
     Active Substance: PREGABALIN
     Indication: NEUROPATHY PERIPHERAL
     Dosage: 50 MG, UNK
     Route: 048
  4. LYRICA [Suspect]
     Active Substance: PREGABALIN
     Indication: DIABETIC NEUROPATHY
     Dosage: 75 MG, UNK
     Route: 048
  5. LYRICA [Suspect]
     Active Substance: PREGABALIN
     Dosage: 225 MG, THRICE DAILY (TAKE 1 CAPSULE BY MOUTH 3 TIMES DAILY)
     Route: 048
  6. GABAPENTIN. [Concomitant]
     Active Substance: GABAPENTIN
     Dosage: 300 MG, UNK
  7. LYRICA [Suspect]
     Active Substance: PREGABALIN
     Dosage: 100 MG, TWICE DAILY
     Route: 048

REACTIONS (2)
  - Drug ineffective [Unknown]
  - Prescribed overdose [Unknown]
